FAERS Safety Report 21297869 (Version 2)
Quarter: 2022Q4

REPORT INFORMATION
  Report Type: Spontaneous
  Country: US (occurrence: US)
  Receive Date: 20220906
  Receipt Date: 20221013
  Transmission Date: 20230113
  Serious: Yes (Other)
  Sender: FDA-Public Use
  Company Number: US-BAYER-2022A122569

PATIENT
  Age: 31 Year
  Sex: Female

DRUGS (1)
  1. MIRENA [Suspect]
     Active Substance: LEVONORGESTREL
     Indication: Contraception
     Dosage: 20?G/DAY
     Route: 015
     Dates: start: 20220613, end: 20220621

REACTIONS (3)
  - Genital haemorrhage [Recovered/Resolved]
  - Device expulsion [Recovered/Resolved]
  - Abdominal pain lower [None]

NARRATIVE: CASE EVENT DATE: 20220613
